FAERS Safety Report 14949125 (Version 1)
Quarter: 2018Q2

REPORT INFORMATION
  Report Type: Spontaneous
  Country: US (occurrence: US)
  Receive Date: 20180529
  Receipt Date: 20180529
  Transmission Date: 20180711
  Serious: Yes (Hospitalization)
  Sender: FDA-Public Use
  Company Number: US-ANIPHARMA-2018-US-007990

PATIENT
  Age: 13 Year
  Sex: Female

DRUGS (3)
  1. MORPHINE SULFATE ORAL SOLUTION (NON-SPECIFIC) [Suspect]
     Active Substance: MORPHINE SULFATE
     Route: 048
  2. HYDROMORPHONE [Suspect]
     Active Substance: HYDROMORPHONE
  3. CODEINE [Suspect]
     Active Substance: CODEINE

REACTIONS (12)
  - Human metapneumovirus test positive [None]
  - Loss of consciousness [None]
  - Acute respiratory distress syndrome [Unknown]
  - Acute kidney injury [Unknown]
  - Hypoxia [None]
  - Overdose [Unknown]
  - Respiratory failure [Unknown]
  - Intentional medical device removal by patient [None]
  - Acute chest syndrome [Unknown]
  - Toxicity to various agents [None]
  - Posterior reversible encephalopathy syndrome [Unknown]
  - Somnolence [None]
